FAERS Safety Report 4913207-1 (Version None)
Quarter: 2006Q1

REPORT INFORMATION
  Report Type: 
  Country: None (occurrence: None)
  Receive Date: 20060215
  Receipt Date: 20060206
  Transmission Date: 20060701
  Serious: Yes (Hospitalization, Disabling)
  Sender: FDA-Public Use
  Company Number: US-MERCK-0602USA01486

PATIENT
  Age: 40 Year
  Sex: Female
  Weight: 69 kg

DRUGS (4)
  1. VIOXX [Suspect]
     Indication: ARTHRITIS
     Route: 048
     Dates: start: 20001201
  2. BUSPAR [Concomitant]
     Route: 065
  3. PREMARIN [Concomitant]
     Route: 065
  4. [THERAPY UNSPECIFIED] [Concomitant]
     Route: 065

REACTIONS (6)
  - BONE DISORDER [None]
  - CHOLELITHIASIS [None]
  - KIDNEY INFECTION [None]
  - OEDEMA PERIPHERAL [None]
  - RENAL DISORDER [None]
  - ULCER [None]
